FAERS Safety Report 5796387-8 (Version None)
Quarter: 2008Q2

REPORT INFORMATION
  Report Type: 
  Country: None (occurrence: None)
  Receive Date: 20080630
  Receipt Date: 20080630
  Transmission Date: 20081010
  Serious: Yes (Other)
  Sender: FDA-Public Use
  Company Number: None

PATIENT
  Age: 31 Year
  Sex: Male

DRUGS (5)
  1. LAMICTAL [Suspect]
     Indication: BIPOLAR DISORDER
     Dosage: 300MG QD PO
     Route: 048
     Dates: start: 20080429, end: 20080625
  2. LAMICTAL [Suspect]
     Indication: DRUG DEPENDENCE
     Dosage: 300MG QD PO
     Route: 048
     Dates: start: 20080429, end: 20080625
  3. HYDROCODONE [Concomitant]
  4. PERCOCET [Concomitant]
  5. XANAX [Concomitant]

REACTIONS (4)
  - INTENTIONAL SELF-INJURY [None]
  - PNEUMONIA [None]
  - REFUSAL OF TREATMENT BY PATIENT [None]
  - SUICIDE ATTEMPT [None]
